FAERS Safety Report 5082974-1 (Version None)
Quarter: 2006Q3

REPORT INFORMATION
  Report Type: 
  Country: None (occurrence: None)
  Receive Date: 20060814
  Receipt Date: 20060729
  Transmission Date: 20061208
  Serious: Yes (Hospitalization)
  Sender: FDA-Public Use
  Company Number: S06-UKI-03127-01

PATIENT
  Age: 76 Year
  Sex: Female

DRUGS (7)
  1. ESCITALOPRAM OXALATE [Suspect]
     Indication: DEPRESSION
     Dosage: 10 MG QD PO
     Route: 048
     Dates: start: 20051001
  2. L-THYROXINE (LEVOTHYROXINE) [Concomitant]
  3. DIPYRIDAMOLE [Concomitant]
  4. FUROSEMIDE [Concomitant]
  5. ATORVASTATIN CALCIUM [Concomitant]
  6. SPIRIVA [Concomitant]
  7. SYMBICORT [Concomitant]

REACTIONS (5)
  - BLISTER [None]
  - EXCORIATION [None]
  - INTERTRIGO [None]
  - RASH GENERALISED [None]
  - RASH PUSTULAR [None]
